FAERS Safety Report 8521344 (Version 30)
Quarter: 2021Q2

REPORT INFORMATION
  Report Type: Spontaneous
  Country: US (occurrence: US)
  Receive Date: 20120419
  Receipt Date: 20210623
  Transmission Date: 20210717
  Serious: Yes (Hospitalization, Other)
  Sender: FDA-Public Use
  Company Number: US-PFIZER INC-2009201742

PATIENT
  Age: 65 Year
  Sex: Female
  Weight: 57 kg

DRUGS (29)
  1. XALATAN [Suspect]
     Active Substance: LATANOPROST
     Dosage: UNK
     Route: 047
  2. XALATAN [Suspect]
     Active Substance: LATANOPROST
     Dosage: 2 GTT, 1X/DAY (1 DROP IN EACH EYE ONCE A DAY)
     Route: 047
     Dates: start: 200401
  3. XALATAN [Suspect]
     Active Substance: LATANOPROST
     Dosage: UNK
  4. SYNTHROID [Suspect]
     Active Substance: LEVOTHYROXINE SODIUM
     Indication: THYROID DISORDER
     Dosage: UNK
     Dates: start: 2009
  5. LOSARTAN. [Concomitant]
     Active Substance: LOSARTAN
     Indication: HYPERTENSION
     Dosage: 100 MG, DAILY
     Route: 048
     Dates: start: 2014
  6. LEVOTHYROXINE. [Concomitant]
     Active Substance: LEVOTHYROXINE
     Indication: THYROID DISORDER
     Dosage: 88 UG, 1X/DAY
  7. LEVOTHYROXINE. [Concomitant]
     Active Substance: LEVOTHYROXINE
     Dosage: 100 UG, DAILY (100MCG 1 TABLET BY MOUTH DAILY)
     Route: 048
  8. XALATAN [Suspect]
     Active Substance: LATANOPROST
     Dosage: 2 GTT, 1X/DAY [IN THE EVENING]
  9. TIMOLOL MALEATE. [Suspect]
     Active Substance: TIMOLOL MALEATE
     Indication: INTRAOCULAR PRESSURE INCREASED
     Dosage: 1 DROP IN EACH EYE TWO TIMES A DAY
     Route: 047
     Dates: start: 2007, end: 200810
  10. LEVOTHYROXINE SODIUM. [Concomitant]
     Active Substance: LEVOTHYROXINE SODIUM
     Indication: THYROID DISORDER
     Dosage: 112 UG, 1X/DAY
     Route: 048
     Dates: start: 2012
  11. XALATAN [Suspect]
     Active Substance: LATANOPROST
     Dosage: 2 GTT, 1X/DAY [ONCE AT NIGHT, ONE DROP INTO BOTH EYES]
     Route: 047
  12. LEVOTHYROXINE SODIUM. [Concomitant]
     Active Substance: LEVOTHYROXINE SODIUM
     Indication: HYPOTHYROIDISM
  13. AVAPRO [Concomitant]
     Active Substance: IRBESARTAN
     Indication: HYPERTENSION
     Dosage: 150 MG, 1X/DAY
     Route: 048
     Dates: end: 2013
  14. AMLODIPINE [Concomitant]
     Active Substance: AMLODIPINE BESYLATE
     Dosage: UNK
     Dates: start: 2014
  15. LEVOTHYROXINE. [Concomitant]
     Active Substance: LEVOTHYROXINE
     Indication: HYPOTHYROIDISM
     Dosage: 50 UG, UNK
  16. XALATAN [Suspect]
     Active Substance: LATANOPROST
     Dosage: 1X/DAY (IN THE EVENING)
     Route: 047
     Dates: start: 201111
  17. XALATAN [Suspect]
     Active Substance: LATANOPROST
     Dosage: UNK
  18. XALATAN [Suspect]
     Active Substance: LATANOPROST
     Dosage: 2 GTT, 1X/DAY [IN THE EVENING]
     Route: 047
  19. XALATAN [Suspect]
     Active Substance: LATANOPROST
     Dosage: UNK
  20. TRUSOPT [Suspect]
     Active Substance: DORZOLAMIDE HYDROCHLORIDE
     Indication: GLAUCOMA
     Dosage: UNK
     Route: 047
     Dates: start: 2006, end: 2008
  21. XALATAN [Suspect]
     Active Substance: LATANOPROST
     Indication: GLAUCOMA
     Dosage: 2 GTT, 1X/DAY (1 DROP IN EACH EYE ONCE A DAY)
     Route: 047
     Dates: start: 200401
  22. XALATAN [Suspect]
     Active Substance: LATANOPROST
     Dosage: UNK
     Route: 047
     Dates: start: 2008, end: 2011
  23. XALATAN [Suspect]
     Active Substance: LATANOPROST
     Dosage: 0.005 %, 1X/DAY, (ONE DROP IN EACH EYE ONCE IN THE EVENING)
     Route: 047
     Dates: start: 201111
  24. XALATAN [Suspect]
     Active Substance: LATANOPROST
     Dosage: UNK
     Route: 047
     Dates: end: 201710
  25. XALATAN [Suspect]
     Active Substance: LATANOPROST
     Dosage: UNK
  26. LATANOPROST. [Suspect]
     Active Substance: LATANOPROST
     Indication: GLAUCOMA
     Dosage: UNK, DAILY
     Route: 047
     Dates: start: 201111, end: 2011
  27. TIMOLOL MALEATE. [Suspect]
     Active Substance: TIMOLOL MALEATE
     Indication: GLAUCOMA
     Dosage: UNK
     Route: 047
     Dates: start: 2006
  28. XALATAN [Suspect]
     Active Substance: LATANOPROST
     Dosage: UNK
  29. SYNTHROID [Suspect]
     Active Substance: LEVOTHYROXINE SODIUM
     Indication: HYPOTHYROIDISM
     Dosage: 0.75 UG, DAILY
     Route: 048
     Dates: start: 201111, end: 201209

REACTIONS (43)
  - Body height decreased [Not Recovered/Not Resolved]
  - Corneal endothelial cell loss [Unknown]
  - Hyperthyroidism [Not Recovered/Not Resolved]
  - Mental impairment [Not Recovered/Not Resolved]
  - Cataract [Not Recovered/Not Resolved]
  - Drug ineffective [Unknown]
  - Reading disorder [Not Recovered/Not Resolved]
  - Oropharyngeal pain [Unknown]
  - Chest discomfort [Not Recovered/Not Resolved]
  - Tooth infection [Not Recovered/Not Resolved]
  - Blindness [Not Recovered/Not Resolved]
  - Emphysema [Not Recovered/Not Resolved]
  - Hair disorder [Recovered/Resolved]
  - Malaise [Unknown]
  - Weight decreased [Unknown]
  - Inflammation [Unknown]
  - Paralysis [Recovered/Resolved]
  - Fear [Recovered/Resolved]
  - Growth of eyelashes [Recovered/Resolved]
  - Hypersensitivity [Not Recovered/Not Resolved]
  - Post procedural infection [Unknown]
  - Tinnitus [Recovered/Resolved]
  - Influenza [Not Recovered/Not Resolved]
  - Ear pain [Unknown]
  - Arthritis [Recovered/Resolved]
  - Device failure [Not Recovered/Not Resolved]
  - Neuroendocrine tumour [Unknown]
  - Chronic obstructive pulmonary disease [Not Recovered/Not Resolved]
  - Confusional state [Recovered/Resolved]
  - Gastroenteritis [Unknown]
  - Dyspnoea [Not Recovered/Not Resolved]
  - Eye inflammation [Not Recovered/Not Resolved]
  - Vocal cord dysfunction [Not Recovered/Not Resolved]
  - Eye disorder [Unknown]
  - Eyelid irritation [Not Recovered/Not Resolved]
  - Pain [Recovered/Resolved]
  - Alopecia [Not Recovered/Not Resolved]
  - Condition aggravated [Not Recovered/Not Resolved]
  - Dizziness [Not Recovered/Not Resolved]
  - Thyroid disorder [Recovered/Resolved]
  - Swelling of eyelid [Recovered/Resolved]
  - Dysgraphia [Recovered/Resolved]
  - Muscular weakness [Unknown]

NARRATIVE: CASE EVENT DATE: 2006
